FAERS Safety Report 7249663-6 (Version None)
Quarter: 2011Q1

REPORT INFORMATION
  Report Type: 
  Country: None (occurrence: None)
  Receive Date: 20110128
  Receipt Date: 20110124
  Transmission Date: 20110831
  Serious: No
  Sender: FDA-Public Use
  Company Number: US-JNJFOC-20110106876

PATIENT
  Sex: Male
  Weight: 81.65 kg

DRUGS (1)
  1. FENTANYL-100 [Suspect]
     Indication: ARTHRALGIA
     Route: 062

REACTIONS (1)
  - WRONG TECHNIQUE IN DRUG USAGE PROCESS [None]
